FAERS Safety Report 7714933-1 (Version None)
Quarter: 2011Q3

REPORT INFORMATION
  Report Type: 
  Country: None (occurrence: None)
  Receive Date: 20110829
  Receipt Date: 20110421
  Transmission Date: 20111222
  Serious: No
  Sender: FDA-Public Use
  Company Number: US-GLAXOSMITHKLINE-A0926235A

PATIENT
  Age: 68 Year
  Sex: Female

DRUGS (4)
  1. ZOVIRAX [Suspect]
     Indication: APHTHOUS STOMATITIS
     Route: 061
     Dates: start: 20110208
  2. BENICAR [Concomitant]
     Dosage: 20MG PER DAY
     Route: 048
  3. NIASPAN [Concomitant]
     Dosage: 500MG PER DAY
     Route: 048
  4. FOLGARD [Concomitant]
     Route: 048

REACTIONS (2)
  - PRODUCT QUALITY ISSUE [None]
  - DRUG INEFFECTIVE [None]
